FAERS Safety Report 20188266 (Version 1)
Quarter: 2021Q4

REPORT INFORMATION
  Report Type: Spontaneous
  Country: US (occurrence: US)
  Receive Date: 20211215
  Receipt Date: 20211215
  Transmission Date: 20220304
  Serious: Yes (Other)
  Sender: FDA-Public Use
  Company Number: US-PURDUE-USA-2020-0260580

PATIENT
  Sex: Female

DRUGS (1)
  1. HYSINGLA ER [Suspect]
     Active Substance: HYDROCODONE BITARTRATE
     Indication: Product used for unknown indication
     Dosage: UNK
     Route: 048

REACTIONS (7)
  - Drug dependence [Unknown]
  - Emotional distress [Unknown]
  - Self esteem decreased [Unknown]
  - Pain [Unknown]
  - Depression [Unknown]
  - Drug withdrawal syndrome [Unknown]
  - Unevaluable event [Unknown]
